FAERS Safety Report 8606160 (Version 4)
Quarter: 2014Q4

REPORT INFORMATION
  Report Type: Spontaneous
  Country: US (occurrence: US)
  Receive Date: 20120608
  Receipt Date: 20141212
  Transmission Date: 20150529
  Serious: Yes (Hospitalization, Other)
  Sender: FDA-Public Use
  Company Number: US-ASTRAZENECA-2010SE61160

PATIENT
  Age: 97 Year
  Sex: Female

DRUGS (2)
  1. ATACAND [Suspect]
     Active Substance: CANDESARTAN CILEXETIL
     Route: 048
  2. TOPROL XL [Suspect]
     Active Substance: METOPROLOL SUCCINATE
     Route: 048

REACTIONS (8)
  - Cervical vertebral fracture [Unknown]
  - Fall [Unknown]
  - Malaise [Unknown]
  - Suicidal ideation [Unknown]
  - Type 2 diabetes mellitus [Unknown]
  - Blindness [Unknown]
  - Macular degeneration [Unknown]
  - Arthropathy [Unknown]

NARRATIVE: CASE EVENT DATE: 2014
